FAERS Safety Report 7843603-4 (Version None)
Quarter: 2011Q4

REPORT INFORMATION
  Report Type: 
  Country: None (occurrence: None)
  Receive Date: 20111025
  Receipt Date: 20111019
  Transmission Date: 20120403
  Serious: Yes (Life-Threatening, Hospitalization, Other)
  Sender: FDA-Public Use
  Company Number: US-CELGENEUS-163-21880-11080370

PATIENT
  Sex: Female

DRUGS (7)
  1. REVLIMID [Suspect]
     Indication: MULTIPLE MYELOMA
     Dosage: 25 MILLIGRAM
     Route: 048
     Dates: start: 20090301
  2. REVLIMID [Suspect]
     Dosage: 25 MILLIGRAM
     Route: 048
     Dates: start: 20110601
  3. REVLIMID [Suspect]
     Dosage: 25 MILLIGRAM
     Route: 048
     Dates: start: 20110701, end: 20110801
  4. LASIX [Concomitant]
     Route: 065
  5. MEGACE [Concomitant]
     Route: 065
  6. VASOTEC [Concomitant]
     Route: 065
  7. IRON [Concomitant]
     Route: 065

REACTIONS (3)
  - PNEUMONIA [None]
  - INTESTINAL OBSTRUCTION [None]
  - DIVERTICULAR PERFORATION [None]
